FAERS Safety Report 8133763-2 (Version None)
Quarter: 2012Q1

REPORT INFORMATION
  Report Type: 
  Country: None (occurrence: None)
  Receive Date: 20120213
  Receipt Date: 20120213
  Transmission Date: 20120608
  Serious: Yes (Hospitalization)
  Sender: FDA-Public Use
  Company Number: None

PATIENT
  Age: 73 Year
  Sex: Female
  Weight: 62 kg

DRUGS (2)
  1. EFFIENT [Suspect]
     Indication: CORONARY ARTERY DISEASE
     Dosage: 10 MG
     Route: 048
     Dates: start: 20120201, end: 20120209
  2. EFFIENT [Suspect]
     Indication: CORONARY ARTERIAL STENT INSERTION
     Dosage: 10 MG
     Route: 048
     Dates: start: 20120201, end: 20120209

REACTIONS (1)
  - SUBDURAL HAEMATOMA [None]
